FAERS Safety Report 13170361 (Version 1)
Quarter: 2017Q1

REPORT INFORMATION
  Report Type: Spontaneous
  Country: US (occurrence: US)
  Receive Date: 20170131
  Receipt Date: 20170131
  Transmission Date: 20170428
  Serious: No
  Sender: FDA-Public Use
  Company Number: US-SAGENTPRD-2016-US-000137

PATIENT
  Sex: Female

DRUGS (4)
  1. DOXORUBICIN HYDROCHLORIDE INJECTION, USP [Suspect]
     Active Substance: DOXORUBICIN HYDROCHLORIDE
     Dosage: 30 MG/M2
  2. CISPLATIN. [Concomitant]
     Active Substance: CISPLATIN
  3. CYCLOPHOSPHAMIDE. [Concomitant]
     Active Substance: CYCLOPHOSPHAMIDE
  4. ETOPOSIDE. [Concomitant]
     Active Substance: ETOPOSIDE

REACTIONS (3)
  - Decreased appetite [Recovered/Resolved]
  - Bone marrow failure [Recovered/Resolved]
  - Vomiting [Recovered/Resolved]
